FAERS Safety Report 5731264-X (Version None)
Quarter: 2008Q2

REPORT INFORMATION
  Report Type: 
  Country: None (occurrence: None)
  Receive Date: 20080505
  Receipt Date: 20080423
  Transmission Date: 20081010
  Serious: Yes (Life-Threatening, Hospitalization, Other)
  Sender: FDA-Public Use
  Company Number: ADE2008-0174

PATIENT
  Age: 50 Year
  Sex: Female

DRUGS (12)
  1. METFORMIN HCL [Suspect]
     Indication: DIABETES MELLITUS
  2. CELECOXIB [Suspect]
  3. LEVOTHYROXINE SODIUM [Suspect]
  4. ACETAMINOPHEN AND CODEINE PHOSPHATE [Suspect]
  5. ASPIRIN [Suspect]
     Dosage: 81MG - DAILY - PO
     Route: 048
  6. SIMVASTATIN [Suspect]
  7. OMEPRAZOLE [Suspect]
  8. PREGABALIN [Suspect]
  9. TIZANIDINE HCL [Suspect]
  10. CANDESARTAN CILEXETIL [Suspect]
  11. HYDROCHLOROTHIAZIDE [Suspect]
  12. ARIPIPRAZOLE [Suspect]

REACTIONS (9)
  - DRUG INTERACTION [None]
  - DRUG TOXICITY [None]
  - HAEMATEMESIS [None]
  - HAEMODIALYSIS [None]
  - LACTIC ACIDOSIS [None]
  - OCCULT BLOOD POSITIVE [None]
  - PANCREATITIS ACUTE [None]
  - RENAL FAILURE ACUTE [None]
  - RENAL INJURY [None]
